FAERS Safety Report 9294224 (Version 2)
Quarter: 2014Q1

REPORT INFORMATION
  Report Type: Spontaneous
  Country: US (occurrence: US)
  Receive Date: 20130516
  Receipt Date: 20140213
  Transmission Date: 20141002
  Serious: Yes (Hospitalization, Other)
  Sender: FDA-Public Use
  Company Number: US-TEVA-405287USA

PATIENT
  Age: 74 Year
  Sex: Female

DRUGS (10)
  1. ISONIAZID [Suspect]
     Indication: LATENT TUBERCULOSIS
     Dosage: 300 MILLIGRAM DAILY;
  2. MIRTAZAPINE [Concomitant]
     Route: 065
  3. SIMVASTATIN [Concomitant]
     Route: 065
  4. TRAMADOL [Concomitant]
     Route: 065
  5. RANITIDINE [Concomitant]
     Route: 065
  6. COLACE [Concomitant]
     Route: 065
  7. SENNA [Concomitant]
     Route: 065
  8. FLUTICASONE PROPIONATE [Concomitant]
     Route: 065
  9. VITAMIN D [Concomitant]
     Route: 065
  10. FERROUS GLUCONATE [Concomitant]
     Route: 065

REACTIONS (1)
  - Pancreatitis acute [Recovered/Resolved]
